FAERS Safety Report 21397408 (Version 1)
Quarter: 2022Q3

REPORT INFORMATION
  Report Type: Spontaneous
  Country: US (occurrence: None)
  Receive Date: 20220930
  Receipt Date: 20220930
  Transmission Date: 20221027
  Serious: Yes (Disabling)
  Sender: FDA-Public Use
  Company Number: None

PATIENT
  Age: 73 Year
  Sex: Male
  Weight: 90 kg

DRUGS (1)
  1. TRELEGY ELLIPTA [Suspect]
     Active Substance: FLUTICASONE FUROATE\UMECLIDINIUM BROMIDE\VILANTEROL TRIFENATATE
     Indication: Chronic obstructive pulmonary disease
     Dosage: OTHER STRENGTH : 100/62.5/25;?OTHER QUANTITY : 1 PUFF(S);?FREQUENCY : DAILY;?
     Route: 048
     Dates: start: 20210930, end: 20211231

REACTIONS (3)
  - Dry mouth [None]
  - Dental caries [None]
  - Dysphagia [None]

NARRATIVE: CASE EVENT DATE: 20211231
